FAERS Safety Report 21973166 (Version 1)
Quarter: 2023Q1

REPORT INFORMATION
  Report Type: Spontaneous
  Country: US (occurrence: None)
  Receive Date: 20230207
  Receipt Date: 20230207
  Transmission Date: 20230417
  Serious: Yes (Hospitalization)
  Sender: FDA-Public Use
  Company Number: None

PATIENT
  Sex: Male

DRUGS (10)
  1. SPRAVATO [Suspect]
     Active Substance: ESKETAMINE
     Indication: Major depression
     Dosage: FREQUENCY : TWICE A WEEK;?OTHER ROUTE : NASAL;?
     Route: 050
     Dates: start: 202212
  2. SPRAVATO [Suspect]
     Active Substance: ESKETAMINE
     Dosage: FREQUENCY : TWICE A WEEK;?OTHER ROUTE : NASAL;?
     Route: 050
  3. GABAPENTIN [Concomitant]
  4. GUANFACINE [Concomitant]
     Active Substance: GUANFACINE
  5. HYDROCHLOROTHIAZIDE [Concomitant]
     Active Substance: HYDROCHLOROTHIAZIDE
  6. LISINOPRIL [Concomitant]
     Active Substance: LISINOPRIL
  7. METFORMIN [Concomitant]
  8. SEROQUEL [Concomitant]
     Active Substance: QUETIAPINE FUMARATE
  9. TRINTELLIX [Concomitant]
     Active Substance: VORTIOXETINE HYDROBROMIDE
  10. WELLBUTRIN [Concomitant]
     Active Substance: BUPROPION HYDROCHLORIDE

REACTIONS (5)
  - Loss of consciousness [None]
  - Pneumonia [None]
  - Influenza [None]
  - Therapy cessation [None]
  - General physical health deterioration [None]
